FAERS Safety Report 9761586 (Version 8)
Quarter: 2016Q3

REPORT INFORMATION
  Report Type: Report from Study
  Country: BE (occurrence: BE)
  Receive Date: 20131216
  Receipt Date: 20160811
  Transmission Date: 20161109
  Serious: Yes (Other)
  Sender: FDA-Public Use
  Company Number: PHHY2013BE133061

PATIENT
  Age: 38 Year
  Sex: Female

DRUGS (1)
  1. GILENYA [Suspect]
     Active Substance: FINGOLIMOD HYDROCHLORIDE
     Indication: MULTIPLE SCLEROSIS
     Dosage: 0.5 MG, QD
     Route: 048
     Dates: start: 20121107, end: 20140130

REACTIONS (30)
  - Aspartate aminotransferase increased [Unknown]
  - Blood alkaline phosphatase increased [Unknown]
  - Bilirubin conjugated increased [Unknown]
  - Blood albumin decreased [Unknown]
  - Blood bilirubin increased [Unknown]
  - Eosinophil count decreased [Unknown]
  - Liver function test abnormal [Recovered/Resolved]
  - Blood uric acid decreased [Unknown]
  - White blood cells urine positive [Unknown]
  - Arthralgia [Unknown]
  - Respiratory tract infection [Recovered/Resolved]
  - Haptoglobin increased [Unknown]
  - Nitrite urine present [Unknown]
  - White blood cell count increased [Unknown]
  - Gastroenteritis [Unknown]
  - Gamma-glutamyltransferase increased [Recovered/Resolved]
  - Red blood cell sedimentation rate increased [Unknown]
  - Protein urine present [Unknown]
  - Epstein-Barr virus antibody positive [Unknown]
  - Amylase decreased [Unknown]
  - Vitamin D deficiency [Unknown]
  - Lymphocyte count decreased [Unknown]
  - High density lipoprotein increased [Unknown]
  - Serum ferritin increased [Unknown]
  - Neutrophil count increased [Unknown]
  - C-reactive protein increased [Unknown]
  - Alanine aminotransferase increased [Unknown]
  - Lymphocyte count decreased [Recovered/Resolved]
  - Blood phosphorus decreased [Unknown]
  - Globulins increased [Unknown]

NARRATIVE: CASE EVENT DATE: 20130418
